FAERS Safety Report 5750229-5 (Version None)
Quarter: 2008Q2

REPORT INFORMATION
  Report Type: 
  Country: None (occurrence: None)
  Receive Date: 20080527
  Receipt Date: 20080520
  Transmission Date: 20081010
  Serious: Yes (Other)
  Sender: FDA-Public Use
  Company Number: FR-PFIZER INC-2008043406

PATIENT
  Sex: Male

DRUGS (7)
  1. AMLOR [Suspect]
     Indication: HYPERTENSION
     Route: 048
  2. SECTRAL [Concomitant]
     Indication: HYPERTENSION
  3. COAPROVEL [Concomitant]
  4. CRESTOR [Concomitant]
  5. PANTOPRAZOLE SODIUM [Concomitant]
  6. ASPIRIN [Concomitant]
  7. SINTROM [Concomitant]

REACTIONS (2)
  - CEREBROVASCULAR ACCIDENT [None]
  - OEDEMA PERIPHERAL [None]
